FAERS Safety Report 24731987 (Version 2)
Quarter: 2024Q4

REPORT INFORMATION
  Report Type: Report from Study
  Country: ZA (occurrence: ZA)
  Receive Date: 20241213
  Receipt Date: 20241226
  Transmission Date: 20250115
  Serious: Yes (Other)
  Sender: NOVARTIS
  Company Number: ZA-002147023-NVSC2024ZA122133

PATIENT
  Age: 32 Year
  Sex: Male
  Weight: 110 kg

DRUGS (5)
  1. COSENTYX [Suspect]
     Active Substance: SECUKINUMAB
     Indication: Psoriatic arthropathy
     Dosage: 300 MG, QW, WEEKLY TIMES 4 AND THEN MONTHLY FROM WEEK 5
     Route: 058
     Dates: start: 20211122
  2. COSENTYX [Suspect]
     Active Substance: SECUKINUMAB
     Indication: Psoriasis
     Dosage: 300 MG, QMO (ONCE A MONTH), FROM WEEK 5
     Route: 058
  3. LEFLUNOMIDE [Concomitant]
     Active Substance: LEFLUNOMIDE
     Indication: Product used for unknown indication
     Dosage: 20 MG, QD
     Route: 065
     Dates: start: 202412
  4. METHOTREXATE [Concomitant]
     Active Substance: METHOTREXATE
     Indication: Arthralgia
     Dosage: 12.5 MG, QW
     Route: 065
     Dates: start: 20140227, end: 202412
  5. METHOTREXATE [Concomitant]
     Active Substance: METHOTREXATE
     Indication: Enthesopathy

REACTIONS (3)
  - Blood creatinine abnormal [Unknown]
  - Aspartate aminotransferase abnormal [Unknown]
  - Alanine aminotransferase abnormal [Unknown]
